FAERS Safety Report 17924586 (Version 8)
Quarter: 2025Q1

REPORT INFORMATION
  Report Type: Report from Study
  Country: US (occurrence: US)
  Receive Date: 20200622
  Receipt Date: 20250314
  Transmission Date: 20250409
  Serious: Yes (Hospitalization, Other)
  Sender: TAKEDA
  Company Number: US-SHIRE-US202019923

PATIENT
  Age: 5 Year
  Sex: Male

DRUGS (4)
  1. TEDUGLUTIDE [Suspect]
     Active Substance: TEDUGLUTIDE
     Indication: Short-bowel syndrome
     Dosage: UNK, QD
     Dates: start: 20190807
  2. TEDUGLUTIDE [Suspect]
     Active Substance: TEDUGLUTIDE
     Dosage: UNK, QD
     Dates: start: 20190925, end: 20200813
  3. TEDUGLUTIDE [Suspect]
     Active Substance: TEDUGLUTIDE
  4. TEDUGLUTIDE [Suspect]
     Active Substance: TEDUGLUTIDE

REACTIONS (7)
  - Vascular device infection [Recovered/Resolved]
  - Pyrexia [Recovered/Resolved]
  - Feeding intolerance [Unknown]
  - Viral infection [Unknown]
  - Post transplant lymphoproliferative disorder [Not Recovered/Not Resolved]
  - Transplant rejection [Unknown]
  - Abdominal distension [Unknown]

NARRATIVE: CASE EVENT DATE: 20200510
